FAERS Safety Report 4938952-3 (Version None)
Quarter: 2006Q1

REPORT INFORMATION
  Report Type: 
  Country: None (occurrence: None)
  Receive Date: 20060306
  Receipt Date: 20060130
  Transmission Date: 20060701
  Serious: No
  Sender: FDA-Public Use
  Company Number: 0511-604

PATIENT
  Age: 43 Year
  Sex: Male
  Weight: 90.7194 kg

DRUGS (4)
  1. DUONEB [Suspect]
     Indication: DYSPNOEA
     Dosage: 3ML
     Dates: start: 20050919, end: 20050924
  2. ALLEGRA [Concomitant]
  3. ADVIL [Concomitant]
  4. EPIPEN [Concomitant]

REACTIONS (2)
  - CONDITION AGGRAVATED [None]
  - DYSPNOEA [None]
